FAERS Safety Report 5407768-6 (Version None)
Quarter: 2007Q3

REPORT INFORMATION
  Report Type: 
  Country: None (occurrence: None)
  Receive Date: 20070807
  Receipt Date: 20070725
  Transmission Date: 20080115
  Serious: Yes (Hospitalization)
  Sender: FDA-Public Use
  Company Number: US-SHR-US-2007-027783

PATIENT
  Age: 22 Year
  Sex: Female

DRUGS (1)
  1. BETASERON [Suspect]
     Dosage: 4 MIU, EVERY 2D
     Route: 058
     Dates: start: 20070711

REACTIONS (3)
  - BLADDER DISORDER [None]
  - MUSCULAR WEAKNESS [None]
  - PAIN IN EXTREMITY [None]
